FAERS Safety Report 24002340 (Version 1)
Quarter: 2024Q2

REPORT INFORMATION
  Report Type: Spontaneous
  Country: US (occurrence: US)
  Receive Date: 20240623
  Receipt Date: 20240623
  Transmission Date: 20240716
  Serious: No
  Sender: FDA-Public Use
  Company Number: US-GSKCCFUS-Case-02036535_AE-112920

PATIENT
  Age: 54 Year
  Sex: Female

DRUGS (1)
  1. BENLYSTA [Suspect]
     Active Substance: BELIMUMAB
     Indication: Product used for unknown indication
     Dosage: UNK
     Dates: start: 20240611

REACTIONS (8)
  - Nausea [Not Recovered/Not Resolved]
  - Weight decreased [Unknown]
  - Oropharyngeal pain [Not Recovered/Not Resolved]
  - Malaise [Unknown]
  - Pollakiuria [Unknown]
  - Blood urine present [Unknown]
  - Protein urine present [Unknown]
  - Urinary tract infection [Unknown]

NARRATIVE: CASE EVENT DATE: 20240611
